FAERS Safety Report 8445642-1 (Version None)
Quarter: 2012Q2

REPORT INFORMATION
  Report Type: 
  Country: None (occurrence: None)
  Receive Date: 20120618
  Receipt Date: 20120604
  Transmission Date: 20120825
  Serious: Yes (Disabling)
  Sender: FDA-Public Use
  Company Number: DE-BAYER-2012-057240

PATIENT

DRUGS (14)
  1. HYDROXYUREA [Suspect]
     Dosage: 500 MG, UNK
     Route: 048
     Dates: start: 20080811, end: 20081130
  2. HYDROXYUREA [Suspect]
     Dosage: 500 MG, UNK
     Route: 048
     Dates: start: 20090720, end: 20100115
  3. HYDROXYUREA [Suspect]
     Dosage: 500 MG, UNK
     Route: 048
     Dates: start: 20051017, end: 20071021
  4. ALLOPURINOL [Concomitant]
     Indication: HYPERURICAEMIA
     Dosage: 150 MG, UNK
     Route: 048
     Dates: start: 20020101
  5. HYDROXYUREA [Suspect]
     Indication: ESSENTIAL THROMBOCYTHAEMIA
     Dosage: 500 MG, UNK
     Route: 048
     Dates: start: 19980430, end: 20050329
  6. HYDROXYUREA [Suspect]
     Dosage: 500 MG, UNK
     Route: 048
     Dates: start: 20050330, end: 20051016
  7. HYDROXYUREA [Suspect]
     Dosage: 500 MG, UNK
     Route: 048
     Dates: start: 20071022, end: 20080706
  8. ANAGRELIDE HCL [Suspect]
     Indication: ESSENTIAL THROMBOCYTHAEMIA
     Dosage: 0.5 MG, UNK
     Route: 048
     Dates: start: 20050330, end: 20051017
  9. ASPIRIN [Suspect]
     Indication: ESSENTIAL THROMBOCYTHAEMIA
     Dosage: 100 MG, UNK
     Route: 048
     Dates: start: 20030901
  10. HYDROXYUREA [Suspect]
     Dosage: 500 MG, UNK
     Route: 048
     Dates: start: 20081201, end: 20090125
  11. HYDROXYUREA [Suspect]
     Dosage: 500 MG, UNK
     Route: 048
     Dates: start: 20090126, end: 20090719
  12. METOPROLOL SUCCINATE [Concomitant]
     Indication: HYPERTENSION
     Dosage: 47.5 MG, UNK
     Route: 048
     Dates: start: 20030101
  13. SIMVASTATIN [Concomitant]
     Indication: HYPERCHOLESTEROLAEMIA
     Dosage: 20 MG, UNK
     Route: 048
     Dates: start: 20030101
  14. HYDROXYUREA [Suspect]
     Dosage: 500 MG, UNK
     Route: 048
     Dates: start: 20080708, end: 20080810

REACTIONS (6)
  - TACHYARRHYTHMIA [None]
  - ATRIAL FIBRILLATION [None]
  - CARDIAC FAILURE [None]
  - SUPRAVENTRICULAR TACHYARRHYTHMIA [None]
  - CARDIOMYOPATHY [None]
  - ARRHYTHMIA [None]
